FAERS Safety Report 9280778 (Version 1)
Quarter: 2013Q2

REPORT INFORMATION
  Report Type: Spontaneous
  Country: US (occurrence: None)
  Receive Date: 20130502
  Receipt Date: 20130502
  Transmission Date: 20140414
  Serious: Yes (Other)
  Sender: FDA-Public Use
  Company Number: 001520931A

PATIENT
  Age: 61 Year
  Sex: Female

DRUGS (4)
  1. MB* ANTIOXIDANT DAY CREME SPF 20 [Suspect]
     Dosage: DERMAL USED TWICE?
     Dates: start: 20130302, end: 20130303
  2. MB* SKIN BRIGHTENING DECOLLETE+NECK TREATMENT SPF 15 [Suspect]
     Dosage: DERMAL USED TWICE?
     Dates: start: 20130302, end: 20130303
  3. SUDAFED [Concomitant]
  4. ADVIL [Concomitant]

REACTIONS (2)
  - Pruritus [None]
  - Throat tightness [None]
